FAERS Safety Report 17088555 (Version 1)
Quarter: 2019Q4

REPORT INFORMATION
  Report Type: Spontaneous
  Country: FR (occurrence: FR)
  Receive Date: 20191128
  Receipt Date: 20191128
  Transmission Date: 20200122
  Serious: Yes (Other)
  Sender: FDA-Public Use
  Company Number: NVSC2019FR047960

PATIENT
  Age: 7 Month
  Sex: Female
  Weight: 4.63 kg

DRUGS (1)
  1. ZOPHREN [Suspect]
     Active Substance: ONDANSETRON
     Indication: INCORRECT DOSE ADMINISTERED
     Dosage: 4.5 MG, QD
     Route: 040
     Dates: start: 20190523, end: 20190523

REACTIONS (6)
  - Wrong dose [Recovered/Resolved]
  - Product administration error [Recovered/Resolved]
  - Overdose [Recovered/Resolved]
  - Tachycardia [Recovered/Resolved]
  - Hypokalaemia [Recovered/Resolved]
  - Extra dose administered [Recovered/Resolved]

NARRATIVE: CASE EVENT DATE: 20190523
